FAERS Safety Report 13374535 (Version 1)
Quarter: 2017Q1

REPORT INFORMATION
  Report Type: Spontaneous
  Country: US (occurrence: US)
  Receive Date: 20170327
  Receipt Date: 20170327
  Transmission Date: 20170429
  Serious: Yes (Death, Hospitalization)
  Sender: FDA-Public Use
  Company Number: US-JNJFOC-20170312627

PATIENT
  Age: 56 Year
  Sex: Female
  Weight: 100.7 kg

DRUGS (1)
  1. XARELTO [Suspect]
     Active Substance: RIVAROXABAN
     Indication: DEEP VEIN THROMBOSIS
     Route: 048
     Dates: start: 20160617, end: 20160727

REACTIONS (5)
  - Off label use [Unknown]
  - Prescribed underdose [Unknown]
  - Haemorrhage intracranial [Fatal]
  - Brain herniation [Fatal]
  - Thalamus haemorrhage [Fatal]

NARRATIVE: CASE EVENT DATE: 20160617
